FAERS Safety Report 4363643-X (Version None)
Quarter: 2004Q2

REPORT INFORMATION
  Report Type: 
  Country: None (occurrence: None)
  Receive Date: 20040517
  Receipt Date: 20040415
  Transmission Date: 20050107
  Serious: No
  Sender: FDA-Public Use
  Company Number: S04-USA-02104-01

PATIENT
  Age: 75 Year
  Sex: Male

DRUGS (5)
  1. NAMENDA [Suspect]
     Indication: AMYLOIDOSIS
     Dosage: 15 MG QD PO
     Route: 048
     Dates: start: 20040411
  2. NAMENDA [Suspect]
     Indication: NERVOUS SYSTEM DISORDER
     Dosage: 15 MG QD PO
     Route: 048
     Dates: start: 20040411
  3. NAMENDA [Suspect]
     Dosage: 5 MG QD PO
     Route: 048
     Dates: start: 20040328, end: 20040403
  4. NAMENDA [Suspect]
     Dosage: 10 MG QD PO
     Route: 048
     Dates: start: 20040404, end: 20040410
  5. VITAMIN SUPPLEMENT [Concomitant]

REACTIONS (1)
  - HERPES ZOSTER [None]
